FAERS Safety Report 9238322 (Version 1)
Quarter: 2013Q1

REPORT INFORMATION
  Report Type: Spontaneous
  Country: US (occurrence: None)
  Receive Date: 20121106
  Receipt Date: 20121106
  Transmission Date: 20140127
  Serious: No
  Sender: FDA-Public Use
  Company Number: 1000037233

PATIENT
  Age: 66 Year
  Sex: Female

DRUGS (5)
  1. DALIRESP [Suspect]
     Indication: ASTHMA
     Route: 048
     Dates: start: 201207, end: 201207
  2. ESTRATEST (ESTERIFIED ESTROGENS, METHYTESTOSTERONE) (ESTERIFIED ESTROGENS, METHYLTESTOSTERONE) [Concomitant]
  3. PROVERA (MEDROXYPROGESTERONE ACETATE) (MEDROXYPROGESTERONE ACETATE) [Concomitant]
  4. PROAIR HFA (ALBUTEROL) (ALBUTEROL) [Concomitant]
  5. SYMBICORT (BUDESONIDE W/FORMOTEROL FUMARATE) (BEDESONIDE W/FORMOTEROL FUMARATE) [Concomitant]

REACTIONS (3)
  - Anxiety [None]
  - Hyperhidrosis [None]
  - Off label use [None]
